FAERS Safety Report 5985135-4 (Version None)
Quarter: 2008Q4

REPORT INFORMATION
  Report Type: 
  Country: None (occurrence: None)
  Receive Date: 20081203
  Receipt Date: 20070726
  Transmission Date: 20090506
  Serious: Yes (Other)
  Sender: FDA-Public Use
  Company Number: WAES0708USA00329

PATIENT
  Age: 24 Year
  Sex: Female

DRUGS (4)
  1. METHYLDOPA [Suspect]
     Indication: HYPERTENSION
  2. LABETALOL HCL [Concomitant]
  3. HYDRALAZINE HCL [Concomitant]
  4. NIFEDIPINE [Concomitant]

REACTIONS (10)
  - ABORTION INDUCED [None]
  - BLOOD PRESSURE INADEQUATELY CONTROLLED [None]
  - DRUG EXPOSURE DURING PREGNANCY [None]
  - HELLP SYNDROME [None]
  - LEFT VENTRICULAR HYPERTROPHY [None]
  - MULTI-ORGAN DISORDER [None]
  - OEDEMA PERIPHERAL [None]
  - OLIGURIA [None]
  - RENAL ARTERY STENOSIS [None]
  - RETINOPATHY HYPERTENSIVE [None]
